FAERS Safety Report 17955282 (Version 3)
Quarter: 2022Q3

REPORT INFORMATION
  Report Type: Spontaneous
  Country: US (occurrence: US)
  Receive Date: 20200629
  Receipt Date: 20220809
  Transmission Date: 20221027
  Serious: Yes (Other)
  Sender: FDA-Public Use
  Company Number: US-GILEAD-2020-0476513

PATIENT
  Sex: Male
  Weight: 102.04 kg

DRUGS (43)
  1. VIREAD [Suspect]
     Active Substance: TENOFOVIR DISOPROXIL FUMARATE
     Indication: HIV infection
     Dosage: UNK
     Route: 048
     Dates: start: 200110, end: 201603
  2. VIREAD [Suspect]
     Active Substance: TENOFOVIR DISOPROXIL FUMARATE
     Dosage: UNK
     Route: 048
     Dates: start: 200307, end: 2007
  3. VIREAD [Suspect]
     Active Substance: TENOFOVIR DISOPROXIL FUMARATE
     Dosage: UNK
     Route: 048
     Dates: start: 2001
  4. TYBOST [Concomitant]
     Active Substance: COBICISTAT
  5. EPZICOM [Concomitant]
     Active Substance: ABACAVIR SULFATE\LAMIVUDINE
  6. NORVIR [Concomitant]
     Active Substance: RITONAVIR
  7. PREZCOBIX [Concomitant]
     Active Substance: COBICISTAT\DARUNAVIR ETHANOLATE
  8. REYATAZ [Concomitant]
     Active Substance: ATAZANAVIR SULFATE
  9. TIVICAY [Concomitant]
     Active Substance: DOLUTEGRAVIR SODIUM
  10. ZIAGEN [Concomitant]
     Active Substance: ABACAVIR SULFATE
  11. ALPRAZOLAM [Concomitant]
     Active Substance: ALPRAZOLAM
  12. ANDROGEL [Concomitant]
     Active Substance: TESTOSTERONE
  13. ARIPIPRAZOLE [Concomitant]
     Active Substance: ARIPIPRAZOLE
  14. BENZONATATE [Concomitant]
     Active Substance: BENZONATATE
  15. BUPROPION [Concomitant]
     Active Substance: BUPROPION
  16. BYDUREON [Concomitant]
     Active Substance: EXENATIDE
  17. CARTIA XT [Concomitant]
     Active Substance: DILTIAZEM HYDROCHLORIDE
  18. CHANTIX [Concomitant]
     Active Substance: VARENICLINE TARTRATE
  19. CHLORTHALIDONE [Concomitant]
     Active Substance: CHLORTHALIDONE
  20. COLESEVELAM [Concomitant]
     Active Substance: COLESEVELAM
  21. CREON [Concomitant]
     Active Substance: PANCRELIPASE AMYLASE\PANCRELIPASE LIPASE\PANCRELIPASE PROTEASE
  22. CYCLOBENZAPRINE [Concomitant]
     Active Substance: CYCLOBENZAPRINE
  23. DICLOFENAC [Concomitant]
     Active Substance: DICLOFENAC
  24. CYMBALTA [Concomitant]
     Active Substance: DULOXETINE HYDROCHLORIDE
  25. EGRIFTA [Concomitant]
     Active Substance: TESAMORELIN ACETATE
  26. ENDOCET [Concomitant]
     Active Substance: ACETAMINOPHEN\OXYCODONE HYDROCHLORIDE
  27. FLUTICASONE [Concomitant]
     Active Substance: FLUTICASONE
  28. GABAPENTIN [Concomitant]
     Active Substance: GABAPENTIN
  29. JARDIANCE [Concomitant]
     Active Substance: EMPAGLIFLOZIN
  30. LEVETIRACETAM [Concomitant]
     Active Substance: LEVETIRACETAM
  31. LISINOPRIL [Concomitant]
     Active Substance: LISINOPRIL
  32. LYRICA [Concomitant]
     Active Substance: PREGABALIN
  33. MYTESI [Concomitant]
     Active Substance: CROFELEMER
  34. NICOTINE [Concomitant]
     Active Substance: NICOTINE
  35. OXYCODONE AND ACETAMINOPHEN [Concomitant]
     Active Substance: ACETAMINOPHEN\OXYCODONE HYDROCHLORIDE
  36. QUETIAPINE [Concomitant]
     Active Substance: QUETIAPINE
  37. RISPERIDONE [Concomitant]
     Active Substance: RISPERIDONE
  38. ROSUVASTATIN [Concomitant]
     Active Substance: ROSUVASTATIN
  39. TESTOSTERONE [Concomitant]
     Active Substance: TESTOSTERONE
  40. VICTOZA [Concomitant]
     Active Substance: LIRAGLUTIDE
  41. VITAMIN D2 [Concomitant]
     Active Substance: ERGOCALCIFEROL
  42. VITAMIN D3 [Concomitant]
     Active Substance: CHOLECALCIFEROL
  43. ZOLPIDEM [Concomitant]
     Active Substance: ZOLPIDEM TARTRATE

REACTIONS (19)
  - Multiple fractures [Unknown]
  - Osteoporotic fracture [Unknown]
  - Pathological fracture [Unknown]
  - Ankle fracture [Not Recovered/Not Resolved]
  - Chronic kidney disease [Not Recovered/Not Resolved]
  - Osteomalacia [Unknown]
  - Osteoporosis [Not Recovered/Not Resolved]
  - Osteonecrosis [Unknown]
  - Renal failure [Unknown]
  - Bone loss [Unknown]
  - Bone density decreased [Unknown]
  - Osteopenia [Not Recovered/Not Resolved]
  - Fear-related avoidance of activities [Not Recovered/Not Resolved]
  - Anxiety [Not Recovered/Not Resolved]
  - Depression [Unknown]
  - Pain [Not Recovered/Not Resolved]
  - Emotional distress [Not Recovered/Not Resolved]
  - Bone demineralisation [Unknown]
  - Anhedonia [Not Recovered/Not Resolved]

NARRATIVE: CASE EVENT DATE: 20030101
